FAERS Safety Report 9624379 (Version 2)
Quarter: 2016Q3

REPORT INFORMATION
  Report Type: Spontaneous
  Country: JP (occurrence: JP)
  Receive Date: 20131015
  Receipt Date: 20160822
  Transmission Date: 20161109
  Serious: Yes (Hospitalization, Other)
  Sender: FDA-Public Use
  Company Number: JP-GLAXOSMITHKLINE-B0896085A

PATIENT
  Age: 37 Year
  Sex: Male

DRUGS (7)
  1. EURODIN TABLET (JAPAN) [Suspect]
     Active Substance: ESTAZOLAM
     Dosage: 1 MG, QD
     Route: 048
     Dates: start: 20111104, end: 20111110
  2. RIVOTRIL [Concomitant]
     Active Substance: CLONAZEPAM
     Route: 048
     Dates: start: 20111014, end: 20111110
  3. LAMOTRIGINE. [Suspect]
     Active Substance: LAMOTRIGINE
     Indication: BIPOLAR DISORDER
     Dosage: 50 MG, QD
     Route: 048
     Dates: start: 20111014, end: 20111027
  4. PURSENNID [Concomitant]
     Active Substance: SENNOSIDES A AND B
     Indication: CONSTIPATION
     Route: 048
     Dates: start: 20110723, end: 20111020
  5. ABILIFY [Concomitant]
     Active Substance: ARIPIPRAZOLE
     Indication: BIPOLAR DISORDER
     Route: 048
     Dates: start: 20110819, end: 20111208
  6. LAMOTRIGINE. [Suspect]
     Active Substance: LAMOTRIGINE
     Dosage: 100 MG, BID
     Route: 048
     Dates: start: 20111028, end: 20111110
  7. SILECE [Concomitant]
     Active Substance: FLUNITRAZEPAM
     Indication: DEPRESSION
     Route: 048
     Dates: start: 20110624

REACTIONS (30)
  - Lip erosion [Unknown]
  - Rash maculo-papular [Unknown]
  - Alanine aminotransferase increased [Unknown]
  - Skin disorder [Unknown]
  - Neutrophil count increased [Unknown]
  - Nikolsky^s sign [Unknown]
  - Toxic epidermal necrolysis [Recovered/Resolved]
  - Conjunctival erosion [Unknown]
  - Flushing [Unknown]
  - Oral mucosa erosion [Unknown]
  - Malaise [Unknown]
  - Drug eruption [Unknown]
  - Conjunctival hyperaemia [Unknown]
  - Dermatitis [Unknown]
  - Eye discharge [Unknown]
  - Fatigue [Unknown]
  - Blister [Unknown]
  - Erythema [Unknown]
  - Erythema of eyelid [Unknown]
  - Eyelid erosion [Unknown]
  - Rash [Unknown]
  - Pyrexia [Unknown]
  - Rash pustular [Unknown]
  - Ocular hyperaemia [Unknown]
  - Skin degenerative disorder [Unknown]
  - Epidermal necrosis [Unknown]
  - Skin necrosis [Unknown]
  - Generalised erythema [Unknown]
  - Perivascular dermatitis [Unknown]
  - Acute generalised exanthematous pustulosis [Unknown]

NARRATIVE: CASE EVENT DATE: 20111106
